FAERS Safety Report 25205289 (Version 3)
Quarter: 2025Q3

REPORT INFORMATION
  Report Type: Report from Study
  Country: EU (occurrence: EU)
  Receive Date: 20250417
  Receipt Date: 20250912
  Transmission Date: 20251021
  Serious: Yes (Life-Threatening, Hospitalization)
  Sender: ABBVIE
  Company Number: EU-JNJFOC-20250418492

PATIENT
  Age: 64 Year
  Sex: Male
  Weight: 71 kg

DRUGS (31)
  1. IBRUTINIB [Suspect]
     Active Substance: IBRUTINIB
     Indication: Chronic lymphocytic leukaemia
     Dosage: FREQ: QD
     Route: 048
     Dates: start: 20250313, end: 20250327
  2. DELORAZEPAM [Concomitant]
     Active Substance: DELORAZEPAM
     Indication: Unevaluable event
     Route: 048
  3. DELORAZEPAM [Concomitant]
     Active Substance: DELORAZEPAM
     Indication: Unevaluable event
     Route: 048
  4. THIOCOLCHICOSIDE [Concomitant]
     Active Substance: THIOCOLCHICOSIDE
     Indication: Unevaluable event
     Route: 030
  5. THIOCOLCHICOSIDE [Concomitant]
     Active Substance: THIOCOLCHICOSIDE
     Indication: Unevaluable event
     Route: 030
  6. NALOXONE HYDROCHLORIDE\OXYCODONE HYDROCHLORIDE [Concomitant]
     Active Substance: NALOXONE HYDROCHLORIDE\OXYCODONE HYDROCHLORIDE
     Indication: Unevaluable event
     Route: 048
  7. DEXAMETHASONE [Concomitant]
     Active Substance: DEXAMETHASONE
     Indication: Unevaluable event
     Route: 030
     Dates: start: 20250319, end: 20250324
  8. DEXAMETHASONE [Concomitant]
     Active Substance: DEXAMETHASONE
     Indication: Unevaluable event
     Route: 030
     Dates: start: 20250319, end: 20250324
  9. MAGNESIUM PIDOLATE [Concomitant]
     Active Substance: MAGNESIUM PIDOLATE
     Indication: Unevaluable event
     Route: 048
  10. MAGNESIUM PIDOLATE [Concomitant]
     Active Substance: MAGNESIUM PIDOLATE
     Indication: Unevaluable event
     Route: 048
  11. ATORVASTATIN [Concomitant]
     Active Substance: ATORVASTATIN
     Indication: Unevaluable event
     Route: 048
  12. ATORVASTATIN [Concomitant]
     Active Substance: ATORVASTATIN
     Indication: Unevaluable event
     Route: 048
  13. OMEPRAZOLE [Concomitant]
     Active Substance: OMEPRAZOLE
     Indication: Prophylaxis
     Route: 048
  14. OMEPRAZOLE [Concomitant]
     Active Substance: OMEPRAZOLE
     Indication: Prophylaxis
     Route: 048
  15. NEBIVOLOL [Concomitant]
     Active Substance: NEBIVOLOL
     Indication: Unevaluable event
     Route: 048
  16. NEBIVOLOL [Concomitant]
     Active Substance: NEBIVOLOL
     Indication: Unevaluable event
     Route: 048
  17. PREDNISONE [Concomitant]
     Active Substance: PREDNISONE
     Indication: Unevaluable event
     Route: 048
  18. PREDNISONE [Concomitant]
     Active Substance: PREDNISONE
     Indication: Unevaluable event
     Route: 048
  19. ENOXAPARIN SODIUM [Concomitant]
     Active Substance: ENOXAPARIN SODIUM
     Indication: Adverse event
     Route: 058
     Dates: start: 20250403
  20. CEFOTAXIME [Concomitant]
     Active Substance: CEFOTAXIME SODIUM
     Indication: Adverse event
     Route: 042
     Dates: start: 20250403
  21. CEFOTAXIME [Concomitant]
     Active Substance: CEFOTAXIME SODIUM
     Indication: Adverse event
     Route: 042
     Dates: start: 20250403
  22. WARFARIN [Concomitant]
     Active Substance: WARFARIN
     Indication: Adverse event
     Route: 048
     Dates: start: 20250403
  23. WARFARIN [Concomitant]
     Active Substance: WARFARIN
     Indication: Adverse event
     Route: 048
     Dates: start: 20250403
  24. CEFTRIAXONE [Concomitant]
     Active Substance: CEFTRIAXONE
     Indication: Adverse event
     Route: 042
     Dates: start: 20250325
  25. CEFTRIAXONE [Concomitant]
     Active Substance: CEFTRIAXONE
     Indication: Adverse event
     Route: 042
     Dates: start: 20250325
  26. ALLOPURINOL [Concomitant]
     Active Substance: ALLOPURINOL
     Indication: Unevaluable event
     Dosage: QD
     Route: 048
     Dates: start: 20250312
  27. Dihydrocodeine;Pentetrazol [Concomitant]
     Indication: Adverse event
     Route: 048
     Dates: start: 20250403, end: 20250403
  28. ETORICOXIB [Concomitant]
     Active Substance: ETORICOXIB
     Indication: Unevaluable event
     Route: 048
  29. ETORICOXIB [Concomitant]
     Active Substance: ETORICOXIB
     Indication: Unevaluable event
     Route: 048
  30. TRAMADOL [Concomitant]
     Active Substance: TRAMADOL
     Indication: Unevaluable event
     Route: 048
  31. TRAMADOL [Concomitant]
     Active Substance: TRAMADOL
     Indication: Unevaluable event
     Route: 048

REACTIONS (1)
  - Heart valve replacement [Recovered/Resolved]

NARRATIVE: CASE EVENT DATE: 20250401
